FAERS Safety Report 4424880-9 (Version None)
Quarter: 2004Q3

REPORT INFORMATION
  Report Type: 
  Country: None (occurrence: None)
  Receive Date: 20040812
  Receipt Date: 20040806
  Transmission Date: 20050211
  Serious: Yes (Other)
  Sender: FDA-Public Use
  Company Number: GB-MERCK-0408GBR00076

PATIENT
  Age: 93 Year
  Sex: Male

DRUGS (6)
  1. ASPIRIN [Concomitant]
     Indication: TRANSIENT ISCHAEMIC ATTACK
     Route: 048
     Dates: start: 20040308
  2. CARBOMER [Concomitant]
     Route: 047
     Dates: start: 20020215
  3. DEXAMETHASONE AND NEOMYCIN SULFATE AND POLYMYXIN B SULFATE [Concomitant]
     Route: 047
     Dates: start: 20020315
  4. VIOXX [Suspect]
     Indication: OSTEOARTHRITIS
     Route: 048
     Dates: start: 20040209, end: 20040726
  5. SENNA [Concomitant]
     Route: 048
     Dates: start: 20040119
  6. ZOPICLONE [Concomitant]
     Indication: INSOMNIA
     Route: 048
     Dates: start: 20020215

REACTIONS (1)
  - MELAENA [None]
